FAERS Safety Report 9010707 (Version 3)
Quarter: 2013Q1

REPORT INFORMATION
  Report Type: Spontaneous
  Country: CL (occurrence: CL)
  Receive Date: 20130109
  Receipt Date: 20130225
  Transmission Date: 20140127
  Serious: Yes (Other)
  Sender: FDA-Public Use
  Company Number: CL-009507513-1212CHL002991

PATIENT
  Age: 40 Year
  Sex: Female

DRUGS (1)
  1. IMPLANON [Suspect]
     Indication: CONTRACEPTION
     Dosage: 1 DF, 25-70 MCG DAILY, TRIENNIAL
     Route: 059
     Dates: start: 20120530

REACTIONS (4)
  - Abortion spontaneous [Recovered/Resolved]
  - Unintended pregnancy [Recovered/Resolved]
  - Headache [Unknown]
  - Nausea [Unknown]
